FAERS Safety Report 14901137 (Version 1)
Quarter: 2018Q2

REPORT INFORMATION
  Report Type: Spontaneous
  Country: US (occurrence: US)
  Receive Date: 20180429
  Receipt Date: 20180429
  Transmission Date: 20180711
  Serious: Yes (Disabling)
  Sender: FDA-Public Use
  Company Number: None

PATIENT
  Age: 47 Year
  Sex: Female
  Weight: 53.1 kg

DRUGS (5)
  1. PANTOPRAZOLE [Concomitant]
     Active Substance: PANTOPRAZOLE
  2. VITAMIN [Concomitant]
     Active Substance: VITAMINS
  3. BP MEDS [Concomitant]
  4. MYRBETRIQ [Suspect]
     Active Substance: MIRABEGRON
     Indication: CYSTITIS
     Dosage: ?          QUANTITY:1 TABLET(S);?
     Route: 048
     Dates: start: 20180130, end: 20180401
  5. ALLERGY MED [Concomitant]

REACTIONS (2)
  - Blood pressure increased [None]
  - Pain in extremity [None]

NARRATIVE: CASE EVENT DATE: 20180210
